FAERS Safety Report 5365686-6 (Version None)
Quarter: 2007Q2

REPORT INFORMATION
  Report Type: 
  Country: None (occurrence: None)
  Receive Date: 20070621
  Receipt Date: 20070611
  Transmission Date: 20071010
  Serious: Yes (Hospitalization, Disabling)
  Sender: FDA-Public Use
  Company Number: DE-AMGEN-US230056

PATIENT
  Sex: Male
  Weight: 75 kg

DRUGS (1)
  1. ENBREL [Suspect]
     Indication: PSORIATIC ARTHROPATHY
     Route: 058
     Dates: start: 20041101, end: 20070501

REACTIONS (3)
  - CORONARY ARTERY DISEASE [None]
  - MALLORY-WEISS SYNDROME [None]
  - MYOCARDIAL INFARCTION [None]
